FAERS Safety Report 17893586 (Version 1)
Quarter: 2020Q2

REPORT INFORMATION
  Report Type: Spontaneous
  Country: ES (occurrence: ES)
  Receive Date: 20200615
  Receipt Date: 20200615
  Transmission Date: 20200714
  Serious: Yes (Life-Threatening)
  Sender: FDA-Public Use
  Company Number: ES-CADILA HEALTHCARE LIMITED-ES-ZYDUS-028834

PATIENT

DRUGS (5)
  1. PARACETAMOL [Concomitant]
     Active Substance: ACETAMINOPHEN
     Dosage: 1 GRAM,1GR, 1-1-1,(INTERVAL :8 HOURS)
     Route: 048
     Dates: start: 20170925
  2. CARDURAN NEO [Concomitant]
     Active Substance: DOXAZOSIN MESYLATE
     Dosage: 4 MILLIGRAM,1-0-0,(INTERVAL :1 DAYS)
     Route: 048
     Dates: start: 20110101
  3. TRAMADOL. [Suspect]
     Active Substance: TRAMADOL
     Indication: PRODUCT USED FOR UNKNOWN INDICATION
     Dosage: 50 MILLIGRAM,50MG, 1-1-1,(INTERVAL :8 HOURS)
     Route: 048
     Dates: start: 20170925, end: 20171003
  4. PANTOPRAZOL [Concomitant]
     Active Substance: PANTOPRAZOLE SODIUM
     Dosage: 40 MILLIGRAM,40 MG DAY,(INTERVAL :1 DAYS)
     Route: 048
     Dates: start: 20110101
  5. METAMIZOL [Suspect]
     Active Substance: METAMIZOLE SODIUM
     Indication: PRODUCT USED FOR UNKNOWN INDICATION
     Dosage: 575 MILLIGRAM,575MG, 1-1-1,(INTERVAL :8 HOURS)
     Route: 048
     Dates: start: 20170925, end: 20171003

REACTIONS (1)
  - Agranulocytosis [Recovered/Resolved]

NARRATIVE: CASE EVENT DATE: 20171003
